FAERS Safety Report 23150595 (Version 2)
Quarter: 2023Q4

REPORT INFORMATION
  Report Type: Report from Study
  Country: US (occurrence: US)
  Receive Date: 20231106
  Receipt Date: 20231115
  Transmission Date: 20240110
  Serious: Yes (Other)
  Sender: FDA-Public Use
  Company Number: US-ABBVIE-5479527

PATIENT
  Sex: Female

DRUGS (1)
  1. SKYRIZI [Suspect]
     Active Substance: RISANKIZUMAB-RZAA
     Indication: Psoriasis
     Route: 058

REACTIONS (4)
  - Mobility decreased [Unknown]
  - Unevaluable event [Unknown]
  - Bone disorder [Unknown]
  - Overweight [Unknown]

NARRATIVE: CASE EVENT DATE: 20200101
